FAERS Safety Report 5476300-3 (Version None)
Quarter: 2007Q4

REPORT INFORMATION
  Report Type: 
  Country: None (occurrence: None)
  Receive Date: 20071003
  Receipt Date: 20070921
  Transmission Date: 20080405
  Serious: Yes (Death, Life-Threatening, Hospitalization)
  Sender: FDA-Public Use
  Company Number: GB-PFIZER INC-2006124240

PATIENT
  Sex: Female
  Weight: 44 kg

DRUGS (5)
  1. SUTENT [Suspect]
     Indication: RENAL CELL CARCINOMA STAGE UNSPECIFIED
     Route: 048
     Dates: start: 20051207, end: 20060710
  2. LOPERAMIDE HCL [Concomitant]
     Route: 048
  3. MORPHINE SULFATE [Concomitant]
     Route: 048
  4. FERROUS SULFATE TAB [Concomitant]
     Route: 048
  5. PARACETAMOL [Concomitant]
     Route: 048

REACTIONS (5)
  - CONVULSION [None]
  - DISEASE PROGRESSION [None]
  - ENTEROVESICAL FISTULA [None]
  - GASTROINTESTINAL HAEMORRHAGE [None]
  - RESPIRATORY ARREST [None]
